FAERS Safety Report 4958255-0 (Version None)
Quarter: 2006Q1

REPORT INFORMATION
  Report Type: 
  Country: None (occurrence: None)
  Receive Date: 20060330
  Receipt Date: 20060328
  Transmission Date: 20060701
  Serious: Yes (Life-Threatening, Hospitalization)
  Sender: FDA-Public Use
  Company Number: 142089

PATIENT
  Age: 85 Year
  Sex: Female
  Weight: 60 kg

DRUGS (1)
  1. AUGMENTIN '125' [Suspect]
     Indication: BRONCHITIS ACUTE
     Dosage: 1.2G THREE TIMES PER DAY
     Route: 042
     Dates: start: 20060123, end: 20060130

REACTIONS (1)
  - HEPATIC FAILURE [None]
